FAERS Safety Report 9511993 (Version 4)
Quarter: 2013Q4

REPORT INFORMATION
  Report Type: Spontaneous
  Country: SE (occurrence: SE)
  Receive Date: 20130910
  Receipt Date: 20131110
  Transmission Date: 20140711
  Serious: Yes (Other)
  Sender: FDA-Public Use
  Company Number: PHHY2013SE099002

PATIENT
  Age: 32 Year
  Sex: Female

DRUGS (2)
  1. GILENYA [Suspect]
     Indication: RELAPSING-REMITTING MULTIPLE SCLEROSIS
     Dosage: 0.5 MG, QD
     Route: 048
     Dates: start: 20130429, end: 20131010
  2. MODIODAL [Concomitant]
     Indication: FATIGUE
     Dosage: 100 MG, QD
     Route: 048
     Dates: start: 20130514

REACTIONS (9)
  - Central nervous system lesion [Unknown]
  - Multiple sclerosis relapse [Not Recovered/Not Resolved]
  - Optic neuritis [Not Recovered/Not Resolved]
  - Vision blurred [Unknown]
  - Visual field defect [Unknown]
  - Visual acuity reduced [Unknown]
  - Fatigue [Unknown]
  - Basophil count increased [Recovered/Resolved]
  - Drug ineffective [Unknown]
